FAERS Safety Report 10067923 (Version 3)
Quarter: 2014Q2

REPORT INFORMATION
  Report Type: Spontaneous
  Country: US (occurrence: US)
  Receive Date: 20140409
  Receipt Date: 20140410
  Transmission Date: 20141212
  Serious: Yes (Other)
  Sender: FDA-Public Use
  Company Number: US-ABBVIE-14P-163-1223114-00

PATIENT
  Age: 23 Year
  Sex: Female
  Weight: 56.75 kg

DRUGS (3)
  1. HUMIRA [Suspect]
     Indication: PSORIASIS
     Dates: start: 2011, end: 2011
  2. HUMIRA [Suspect]
     Dates: start: 2011, end: 201308
  3. HUMAN PAPILLOMA VACCINE [Concomitant]
     Indication: IMMUNISATION
     Dates: start: 2013

REACTIONS (7)
  - Smear cervix abnormal [Recovered/Resolved]
  - Cervix carcinoma stage I [Recovered/Resolved]
  - Cervix carcinoma stage II [Recovered/Resolved]
  - Pelvic pain [Recovered/Resolved]
  - Psoriasis [Not Recovered/Not Resolved]
  - Drug ineffective [Recovered/Resolved]
  - Nasopharyngitis [Not Recovered/Not Resolved]
